FAERS Safety Report 6641161-3 (Version None)
Quarter: 2010Q1

REPORT INFORMATION
  Report Type: 
  Country: None (occurrence: None)
  Receive Date: 20100318
  Receipt Date: 20100311
  Transmission Date: 20100710
  Serious: Yes (Hospitalization, Other)
  Sender: FDA-Public Use
  Company Number: PH-ABBOTT-10P-128-0631832-00

PATIENT
  Age: 6 Month

DRUGS (1)
  1. DEPACON [Suspect]
     Indication: CONVULSION
     Route: 042
     Dates: start: 20090701, end: 20090701

REACTIONS (2)
  - OVERDOSE [None]
  - WRONG TECHNIQUE IN DRUG USAGE PROCESS [None]
